FAERS Safety Report 8250312-9 (Version None)
Quarter: 2012Q1

REPORT INFORMATION
  Report Type: 
  Country: None (occurrence: None)
  Receive Date: 20120319
  Receipt Date: 20090113
  Transmission Date: 20120608
  Serious: Yes (Hospitalization)
  Sender: FDA-Public Use
  Company Number: PHEH2009US00778

PATIENT
  Age: 68 Year
  Sex: Male
  Weight: 110.7 kg

DRUGS (3)
  1. TEKTURNA HCT [Suspect]
     Dosage: 150 / 12.5 MG, DAILY, ORAL
     Route: 048
  2. RAMIPRIL [Concomitant]
  3. CELEBREX [Concomitant]

REACTIONS (7)
  - HYPOTENSION [None]
  - BLOOD CREATININE INCREASED [None]
  - BLOOD UREA INCREASED [None]
  - CONVULSION [None]
  - DEHYDRATION [None]
  - RENAL FAILURE ACUTE [None]
  - SYNCOPE [None]
